FAERS Safety Report 7484079-9 (Version None)
Quarter: 2011Q2

REPORT INFORMATION
  Report Type: 
  Country: None (occurrence: None)
  Receive Date: 20110513
  Receipt Date: 20110513
  Transmission Date: 20111010
  Serious: Yes (Other)
  Sender: FDA-Public Use
  Company Number: None

PATIENT
  Age: 34 Year
  Sex: Female
  Weight: 115.6672 kg

DRUGS (1)
  1. C-PHENTERMINE 30 MG CAP KKM [Suspect]

REACTIONS (1)
  - GLUCOSE TOLERANCE IMPAIRED [None]
